FAERS Safety Report 19901478 (Version 1)
Quarter: 2021Q3

REPORT INFORMATION
  Report Type: Spontaneous
  Country: US (occurrence: US)
  Receive Date: 20210930
  Receipt Date: 20210930
  Transmission Date: 20211014
  Serious: No
  Sender: FDA-Public Use
  Company Number: US-BION-008995

PATIENT
  Sex: Male

DRUGS (1)
  1. LOPERAMIDE HYDROCHLORIDE. [Suspect]
     Active Substance: LOPERAMIDE HYDROCHLORIDE
     Indication: COLITIS
     Dosage: 2 CAPSULES/DAY (STRENGTH: 2 MG)

REACTIONS (2)
  - Incorrect product administration duration [Not Recovered/Not Resolved]
  - Product use in unapproved indication [Not Recovered/Not Resolved]
